FAERS Safety Report 6261222-0 (Version None)
Quarter: 2009Q3

REPORT INFORMATION
  Report Type: 
  Country: None (occurrence: None)
  Receive Date: 20090709
  Receipt Date: 20090626
  Transmission Date: 20100115
  Serious: Yes (Other)
  Sender: FDA-Public Use
  Company Number: FR-PFIZER INC-2009234661

PATIENT
  Age: 55 Year

DRUGS (2)
  1. LYRICA [Suspect]
     Indication: PROCEDURAL PAIN
     Dosage: UNK
     Dates: start: 20081101
  2. PANOS [Suspect]
     Dosage: UNK
     Dates: start: 20081101

REACTIONS (2)
  - ABNORMAL BEHAVIOUR [None]
  - AGGRESSION [None]
